FAERS Safety Report 18009114 (Version 1)
Quarter: 2020Q3

REPORT INFORMATION
  Report Type: Spontaneous
  Country: US (occurrence: US)
  Receive Date: 20200710
  Receipt Date: 20200710
  Transmission Date: 20201103
  Serious: No
  Sender: FDA-Public Use
  Company Number: US-SAOL THERAPEUTICS-2020SAO00173

PATIENT
  Sex: Male

DRUGS (1)
  1. BACLOFEN. [Suspect]
     Active Substance: BACLOFEN
     Dosage: UNK
     Route: 037

REACTIONS (2)
  - Device physical property issue [Unknown]
  - Implant site extravasation [Unknown]
